FAERS Safety Report 14838506 (Version 1)
Quarter: 2018Q2

REPORT INFORMATION
  Report Type: Report from Study
  Country: CN (occurrence: CN)
  Receive Date: 20180502
  Receipt Date: 20180502
  Transmission Date: 20180711
  Serious: Yes (Hospitalization)
  Sender: FDA-Public Use
  Company Number: CN-ASTRAZENECA-2018SE57250

PATIENT
  Age: 20748 Day
  Sex: Male

DRUGS (6)
  1. EPANOVA [Suspect]
     Active Substance: OMEGA-3-CARBOXYLIC ACIDS
     Indication: HYPERTRIGLYCERIDAEMIA
     Route: 048
     Dates: start: 20170224
  2. ROSUVASTATIN. [Concomitant]
     Active Substance: ROSUVASTATIN
     Indication: DIABETIC VASCULAR DISORDER
     Route: 048
     Dates: start: 20161001
  3. INSULIN [Concomitant]
     Active Substance: INSULIN NOS
     Indication: ARTERIOSCLEROSIS
     Dosage: 22 U DAILY
     Route: 058
     Dates: start: 20170111
  4. EPANOVA [Suspect]
     Active Substance: OMEGA-3-CARBOXYLIC ACIDS
     Indication: HYPERTRIGLYCERIDAEMIA
     Route: 048
     Dates: start: 20161117, end: 20161226
  5. ACARBOSE. [Concomitant]
     Active Substance: ACARBOSE
     Indication: ARTERIOSCLEROSIS
     Route: 048
     Dates: start: 20170123
  6. LUMBRICUS [Concomitant]
     Indication: ARTERIOSCLEROSIS
     Route: 048
     Dates: start: 20161001

REACTIONS (1)
  - Type 2 diabetes mellitus [Recovered/Resolved]

NARRATIVE: CASE EVENT DATE: 20180402
